FAERS Safety Report 10215991 (Version 1)
Quarter: 2014Q2

REPORT INFORMATION
  Report Type: Spontaneous
  Country: GB (occurrence: GB)
  Receive Date: 20140604
  Receipt Date: 20140604
  Transmission Date: 20141212
  Serious: Yes (Other)
  Sender: FDA-Public Use
  Company Number: GB-MPIJNJ-2014JNJ003708

PATIENT
  Sex: 0

DRUGS (3)
  1. VELCADE [Suspect]
     Indication: PLASMA CELL MYELOMA
     Route: 065
  2. CYCLOPHOSPHAMIDE [Concomitant]
  3. DEXAMETHASONE [Concomitant]

REACTIONS (1)
  - Cellulitis orbital [Unknown]
